FAERS Safety Report 21034547 (Version 1)
Quarter: 2022Q2

REPORT INFORMATION
  Report Type: Spontaneous
  Country: US (occurrence: None)
  Receive Date: 20220630
  Receipt Date: 20220630
  Transmission Date: 20220720
  Serious: Yes (Life-Threatening, Other)
  Sender: FDA-Public Use
  Company Number: None

PATIENT
  Age: 33 Year
  Sex: Female
  Weight: 65.77 kg

DRUGS (2)
  1. MIRENA [Suspect]
     Active Substance: LEVONORGESTREL
  2. UNSPECIFIED INGREDIENT [Suspect]
     Active Substance: UNSPECIFIED INGREDIENT

REACTIONS (7)
  - Vaginal haemorrhage [None]
  - Pregnancy test positive [None]
  - Ectopic pregnancy [None]
  - Biochemical pregnancy [None]
  - Human chorionic gonadotropin decreased [None]
  - Pregnancy with contraceptive device [None]
  - Emotional distress [None]

NARRATIVE: CASE EVENT DATE: 20220625
